FAERS Safety Report 4726566-X (Version None)
Quarter: 2005Q3

REPORT INFORMATION
  Report Type: 
  Country: None (occurrence: None)
  Receive Date: 20050727
  Receipt Date: 20050309
  Transmission Date: 20060218
  Serious: Yes (Hospitalization, Disabling, Other)
  Sender: FDA-Public Use
  Company Number: US-MERCK-0503USA01739

PATIENT
  Age: 53 Year
  Sex: Male
  Weight: 95 kg

DRUGS (8)
  1. VIOXX [Suspect]
     Indication: ARTHRALGIA
     Route: 048
     Dates: start: 20011101, end: 20040101
  2. VIOXX [Suspect]
     Indication: PAIN
     Route: 048
     Dates: start: 20011101, end: 20040101
  3. PREDNISONE [Concomitant]
     Indication: RECTAL HAEMORRHAGE
     Route: 065
     Dates: start: 20010502
  4. IMMUNOTHERAPY (UNSPECIFIED) [Concomitant]
     Route: 065
  5. COLAZAL [Concomitant]
     Indication: RECTAL HAEMORRHAGE
     Route: 065
     Dates: start: 20010612
  6. IMURAN [Concomitant]
     Indication: COLITIS ULCERATIVE
     Route: 065
  7. CELEXA [Concomitant]
     Indication: DEPRESSION
     Route: 065
     Dates: start: 20010406
  8. ROWASA [Concomitant]
     Indication: RECTAL HAEMORRHAGE
     Route: 065
     Dates: start: 20011113

REACTIONS (9)
  - ACUTE MYOCARDIAL INFARCTION [None]
  - ANXIETY [None]
  - ATHEROSCLEROSIS [None]
  - BLOOD CHOLESTEROL INCREASED [None]
  - DEAFNESS [None]
  - HYPERTENSION [None]
  - MOVEMENT DISORDER [None]
  - PULMONARY CONGESTION [None]
  - SLEEP APNOEA SYNDROME [None]
